FAERS Safety Report 21935878 (Version 1)
Quarter: 2023Q1

REPORT INFORMATION
  Report Type: Other
  Country: US (occurrence: None)
  Receive Date: 20230201
  Receipt Date: 20230201
  Transmission Date: 20230417
  Serious: Yes (Other)
  Sender: FDA-Public Use
  Company Number: US-ROCHE-2932344

PATIENT
  Age: 65 Year
  Sex: Female

DRUGS (6)
  1. OCREVUS [Suspect]
     Active Substance: OCRELIZUMAB
     Indication: Multiple sclerosis
     Dosage: DATE OF TREATMENT- 16/NOV/2021,
     Route: 042
     Dates: start: 20210504
  2. LISINOPRIL [Concomitant]
     Active Substance: LISINOPRIL
     Route: 048
  3. DARIFENACIN [Concomitant]
     Active Substance: DARIFENACIN
     Route: 048
  4. DICLOFENAC SODIUM [Concomitant]
     Active Substance: DICLOFENAC SODIUM
  5. PROAIR HFA [Concomitant]
     Active Substance: ALBUTEROL SULFATE
  6. ZETIA [Concomitant]
     Active Substance: EZETIMIBE

REACTIONS (2)
  - Vertigo [Unknown]
  - Urinary tract infection [Unknown]
